FAERS Safety Report 9128643 (Version 1)
Quarter: 2013Q1

REPORT INFORMATION
  Report Type: Spontaneous
  Country: BR (occurrence: BR)
  Receive Date: 20130125
  Receipt Date: 20130125
  Transmission Date: 20140127
  Serious: Yes (Other)
  Sender: FDA-Public Use
  Company Number: PHHY2012BR069726

PATIENT
  Age: 71 Year
  Sex: Male
  Weight: 70 kg

DRUGS (4)
  1. DIOVAN AMLO [Suspect]
     Indication: BLOOD PRESSURE
     Dosage: 1 DF, (80 MG VALS/ 5 MG AMLO) IN TNE MORNING
  2. DIOVAN AMLO FIX [Suspect]
     Indication: HYPERTENSION
     Dosage: 1 DF (80 MG VALS/ 5 MG AMLO) PER DAY
     Route: 048
  3. INSULIN [Concomitant]
     Indication: DIABETES MELLITUS
     Dosage: 40 IU, (20 UNITS IN THE MORNING AND 20 UNITS IN THE AFTERNOON)
     Route: 058
  4. VASOGARD [Concomitant]
     Indication: PERIPHERAL CIRCULATORY FAILURE
     Dosage: 1 DF, IN THE MORNING
     Route: 048

REACTIONS (2)
  - Venous occlusion [Recovered/Resolved]
  - Hypersensitivity [Recovered/Resolved]
